FAERS Safety Report 14687386 (Version 1)
Quarter: 2018Q1

REPORT INFORMATION
  Report Type: Report from Study
  Country: JP (occurrence: JP)
  Receive Date: 20180328
  Receipt Date: 20180328
  Transmission Date: 20180509
  Serious: Yes (Death)
  Sender: FDA-Public Use
  Company Number: JP-CIPLA LTD.-2018JP13503

PATIENT

DRUGS (5)
  1. CISPLATIN. [Suspect]
     Active Substance: CISPLATIN
     Indication: OESOPHAGEAL CARCINOMA
     Dosage: 75 MG/M2, ON DAY 1
     Route: 065
  2. NIMOTUZUMAB [Suspect]
     Active Substance: NIMOTUZUMAB
     Dosage: 400 MG, BIWEEKLY
     Route: 042
  3. NIMOTUZUMAB [Suspect]
     Active Substance: NIMOTUZUMAB
     Indication: OESOPHAGEAL CARCINOMA
     Dosage: UNK
     Route: 042
  4. GEMCITABINE [Suspect]
     Active Substance: GEMCITABINE\GEMCITABINE HYDROCHLORIDE
     Indication: BILE DUCT CANCER
     Dosage: UNK
     Route: 065
  5. FLUOROURACIL. [Suspect]
     Active Substance: FLUOROURACIL
     Indication: OESOPHAGEAL CARCINOMA
     Dosage: 1000 MG/M2, ON DAYS 1 TO 4
     Route: 065

REACTIONS (1)
  - Death [Fatal]
